FAERS Safety Report 9150100 (Version 1)
Quarter: 2013Q1

REPORT INFORMATION
  Report Type: Spontaneous
  Country: US (occurrence: None)
  Receive Date: 20130131
  Receipt Date: 20130131
  Transmission Date: 20140127
  Serious: Yes (Other)
  Sender: FDA-Public Use
  Company Number: DKLU1087844

PATIENT
  Age: 16 Month
  Sex: Female
  Weight: 12.6 kg

DRUGS (1)
  1. SABRIL (FOR ORAL SOLUTION) (SABRIL) (VIGABATRIN) (500 MG, POWDER FOR ORAL SOLUTION) [Suspect]
     Indication: INFANTILE SPASMS
     Dates: start: 20120406

REACTIONS (7)
  - Convulsion [None]
  - Infantile spasms [None]
  - Rhinorrhoea [None]
  - Feeling abnormal [None]
  - Vomiting [None]
  - Cough [None]
  - Cognitive disorder [None]
